FAERS Safety Report 7913485-0 (Version None)
Quarter: 2011Q4

REPORT INFORMATION
  Report Type: 
  Country: None (occurrence: None)
  Receive Date: 20111110
  Receipt Date: 20111104
  Transmission Date: 20120403
  Serious: Yes (Life-Threatening)
  Sender: FDA-Public Use
  Company Number: 2011SP051833

PATIENT
  Age: 69 Year
  Sex: Female

DRUGS (17)
  1. XOLAIR [Suspect]
     Indication: ASTHMA
     Dosage: 200 MG;QOW;SC ; SC ; SC
     Route: 058
     Dates: start: 20080710, end: 20090801
  2. XOLAIR [Suspect]
     Indication: ASTHMA
     Dosage: 200 MG;QOW;SC ; SC ; SC
     Route: 058
     Dates: start: 20090801, end: 20100401
  3. XOLAIR [Suspect]
     Indication: ASTHMA
     Dosage: 200 MG;QOW;SC ; SC ; SC
     Route: 058
     Dates: start: 20100401, end: 20100805
  4. ATROVENT [Suspect]
     Indication: ASTHMA
     Dosage: 0.5 MG;TID;INH
     Route: 055
     Dates: start: 20080101
  5. UTEPLEX (URIDINE TRIPHOSPHATE SODIUM) [Suspect]
     Indication: PRODUCT USED FOR UNKNOWN INDICATION
  6. FENOFIBRATE [Suspect]
     Indication: PRODUCT USED FOR UNKNOWN INDICATION
     Dosage: 1 DF;QD
  7. DEDROGYL (CALCIFEDIOL /00591101/) [Suspect]
     Indication: PRODUCT USED FOR UNKNOWN INDICATION
     Dosage: 3 GTT;QD
  8. ACETAMINOPHEN [Suspect]
     Indication: PRODUCT USED FOR UNKNOWN INDICATION
  9. PREDNISONE [Suspect]
     Indication: ASTHMA
     Dosage: 20 MG;QD;PO
     Route: 048
     Dates: start: 20060101
  10. ALDACTONE [Suspect]
     Indication: PRODUCT USED FOR UNKNOWN INDICATION
     Dosage: 25 MG;QD
  11. SINGULAIR [Suspect]
     Indication: ASTHMA
     Dosage: 10 MG;QD;PO
     Route: 048
  12. BRICANYL [Suspect]
     Indication: ASTHMA
     Dosage: 30 MG;QD;INH
     Route: 055
     Dates: start: 20080101
  13. SYMBICORT [Suspect]
     Indication: ASTHMA
     Dosage: 400 MCG;BID;INH
     Route: 055
     Dates: start: 20100101
  14. PROTELOS (STRONTIUM RANELATE) [Suspect]
     Indication: OSTEOPOROSIS
     Dosage: 1 DF;QD;PO
     Route: 048
     Dates: start: 20100101
  15. PANTOPRAZOLE [Suspect]
     Indication: PRODUCT USED FOR UNKNOWN INDICATION
     Dosage: 40 MG;QD
  16. CACIT VITAMINE D3 (LEKOVIT CA) [Suspect]
     Indication: PRODUCT USED FOR UNKNOWN INDICATION
     Dosage: 1 DF;QD
  17. DESLORATADINE [Suspect]
     Indication: PRODUCT USED FOR UNKNOWN INDICATION
     Dosage: 1 DF;QD

REACTIONS (2)
  - PANCOAST'S SYNDROME [None]
  - LUNG SQUAMOUS CELL CARCINOMA STAGE UNSPECIFIED [None]
